FAERS Safety Report 24545857 (Version 1)
Quarter: 2024Q4

REPORT INFORMATION
  Report Type: Spontaneous
  Country: ES (occurrence: ES)
  Receive Date: 20241024
  Receipt Date: 20241024
  Transmission Date: 20250115
  Serious: Yes (Disabling)
  Sender: ABBVIE
  Company Number: ES-ABBVIE-5917844

PATIENT
  Age: 55 Year
  Sex: Male

DRUGS (4)
  1. RISANKIZUMAB [Suspect]
     Active Substance: RISANKIZUMAB
     Indication: Psoriatic arthropathy
     Dosage: THIRD DOSE
     Route: 058
     Dates: start: 202405, end: 202405
  2. RISANKIZUMAB [Suspect]
     Active Substance: RISANKIZUMAB
     Indication: Psoriasis
     Dosage: SECOND DOSE
     Route: 058
     Dates: start: 202402, end: 202402
  3. RISANKIZUMAB [Suspect]
     Active Substance: RISANKIZUMAB
     Indication: Skin disorder
     Dosage: FOURTH DOSE
     Route: 058
     Dates: start: 20240822
  4. RISANKIZUMAB [Suspect]
     Active Substance: RISANKIZUMAB
     Indication: Parkinson^s disease
     Dosage: FIRST DOSE
     Route: 058
     Dates: start: 202401, end: 202401

REACTIONS (10)
  - Pyrexia [Recovered/Resolved]
  - Pain in extremity [Unknown]
  - Unevaluable event [Unknown]
  - Musculoskeletal stiffness [Unknown]
  - Musculoskeletal stiffness [Unknown]
  - Pain [Recovering/Resolving]
  - Nasopharyngitis [Unknown]
  - Injection site discomfort [Recovered/Resolved]
  - Neutralising antibodies positive [Unknown]
  - Therapeutic product effect decreased [Recovered/Resolved]

NARRATIVE: CASE EVENT DATE: 20240101
